FAERS Safety Report 21918720 (Version 5)
Quarter: 2025Q1

REPORT INFORMATION
  Report Type: Report from Study
  Country: JP (occurrence: JP)
  Receive Date: 20230127
  Receipt Date: 20250206
  Transmission Date: 20250409
  Serious: Yes (Other)
  Sender: KYOWA
  Company Number: JP-KYOWAKIRIN-2021AKK012303

PATIENT

DRUGS (8)
  1. BUROSUMAB [Suspect]
     Active Substance: BUROSUMAB
     Indication: Hereditary hypophosphataemic rickets
     Route: 058
     Dates: start: 20200318, end: 20200318
  2. BUROSUMAB [Suspect]
     Active Substance: BUROSUMAB
     Route: 058
     Dates: start: 20200513, end: 20200513
  3. BUROSUMAB [Suspect]
     Active Substance: BUROSUMAB
     Dosage: 50 MG, 1X/4 WEEKS
     Route: 058
     Dates: start: 20200610
  4. ALFAROL [Concomitant]
     Active Substance: ALFACALCIDOL
     Indication: Hereditary hypophosphataemic rickets
     Route: 065
     Dates: end: 20191016
  5. ALFAROL [Concomitant]
     Active Substance: ALFACALCIDOL
     Route: 065
     Dates: start: 20210512
  6. CALCIUM ASPARTATE [Concomitant]
     Active Substance: CALCIUM ASPARTATE
     Indication: Hereditary hypophosphataemic rickets
     Route: 048
     Dates: start: 20210512
  7. REBAMIPIDE [Concomitant]
     Active Substance: REBAMIPIDE
     Indication: Product used for unknown indication
     Route: 048
     Dates: start: 20190710
  8. FAMOTIDINE D EMEC [Concomitant]
     Indication: Product used for unknown indication
     Route: 048
     Dates: start: 20200415

REACTIONS (7)
  - Nephrolithiasis [Unknown]
  - Back pain [Recovered/Resolved]
  - Hypoaesthesia [Not Recovered/Not Resolved]
  - Gait disturbance [Unknown]
  - Tremor [Recovered/Resolved]
  - Hypertension [Recovering/Resolving]
  - Underdose [Unknown]

NARRATIVE: CASE EVENT DATE: 20200301
